FAERS Safety Report 20850756 (Version 1)
Quarter: 2022Q2

REPORT INFORMATION
  Report Type: Spontaneous
  Country: US (occurrence: US)
  Receive Date: 20220519
  Receipt Date: 20220519
  Transmission Date: 20220721
  Serious: No
  Sender: FDA-Public Use
  Company Number: US-PFIZER INC-202200148795

PATIENT
  Age: 85 Year
  Sex: Male

DRUGS (2)
  1. PROCARDIA XL [Suspect]
     Active Substance: NIFEDIPINE
     Dosage: UNK
  2. OMEPRAZOLE [Concomitant]
     Active Substance: OMEPRAZOLE
     Dosage: UNK

REACTIONS (1)
  - Blood pressure abnormal [Unknown]
